FAERS Safety Report 7688864-X (Version None)
Quarter: 2011Q3

REPORT INFORMATION
  Report Type: 
  Country: None (occurrence: None)
  Receive Date: 20110817
  Receipt Date: 20110803
  Transmission Date: 20111222
  Serious: Yes (Hospitalization, Other)
  Sender: FDA-Public Use
  Company Number: PHHY2011AR70801

PATIENT
  Sex: Female

DRUGS (5)
  1. DIOVAN HCT [Suspect]
     Indication: HYPERTENSION
     Dosage: 160 MG VALS AND 12.5 MG HCT, ONE TABLET DAILY
  2. DIOVAN HCT [Suspect]
     Dosage: 160 MG VALS AND 12.5 MG HCT, HALF A TABLET DAILY
  3. INSULIN [Concomitant]
  4. METFORMIN HCL [Concomitant]
  5. DIOVAN HCT [Suspect]
     Dosage: 160 MG VALS AND 12.5 MG HCT, ONE TABLET DAILY

REACTIONS (3)
  - DEVICE OCCLUSION [None]
  - CHEST PAIN [None]
  - HYPERTENSION [None]
